FAERS Safety Report 7633305-1 (Version None)
Quarter: 2011Q3

REPORT INFORMATION
  Report Type: 
  Country: None (occurrence: None)
  Receive Date: 20110701
  Receipt Date: 20100427
  Transmission Date: 20111222
  Serious: Yes (Other)
  Sender: FDA-Public Use
  Company Number: 7002919

PATIENT
  Age: 45 Year
  Sex: Female
  Weight: 85 kg

DRUGS (3)
  1. EXCEDRIN (THOMAPYRIN N) [Concomitant]
  2. LYRICA [Concomitant]
  3. REBIF [Suspect]
     Indication: MULTIPLE SCLEROSIS
     Dosage: 44 MCG, 3 IN 1 WK, SUBCUTANEOUS
     Route: 058
     Dates: start: 20081028

REACTIONS (6)
  - HEADACHE [None]
  - POLLAKIURIA [None]
  - MICTURITION URGENCY [None]
  - INJECTION SITE INDURATION [None]
  - URINARY INCONTINENCE [None]
  - INJECTION SITE DISCOLOURATION [None]
